FAERS Safety Report 17856164 (Version 1)
Quarter: 2020Q2

REPORT INFORMATION
  Report Type: Report from Study
  Country: None (occurrence: CZ)
  Receive Date: 20200603
  Receipt Date: 20200603
  Transmission Date: 20200714
  Serious: Yes (Hospitalization)
  Sender: FDA-Public Use
  Company Number: CZ-ABBVIE-20K-217-3426233-00

PATIENT
  Age: 64 Year
  Sex: Male

DRUGS (1)
  1. HUMIRA [Suspect]
     Active Substance: ADALIMUMAB
     Indication: RHEUMATOID ARTHRITIS
     Route: 058
     Dates: start: 20161123, end: 20200512

REACTIONS (2)
  - Mitral valve incompetence [Recovering/Resolving]
  - Cardiac failure [Recovering/Resolving]

NARRATIVE: CASE EVENT DATE: 20200427
